FAERS Safety Report 8059425-8 (Version None)
Quarter: 2012Q1

REPORT INFORMATION
  Report Type: 
  Country: None (occurrence: None)
  Receive Date: 20120119
  Receipt Date: 20120119
  Transmission Date: 20120608
  Serious: Yes (Other)
  Sender: FDA-Public Use
  Company Number: None

PATIENT
  Age: 50 Year
  Sex: Male
  Weight: 88.2 kg

DRUGS (2)
  1. ATAZANAVIR [Suspect]
     Indication: HIV INFECTION
     Dosage: 300 MG DAILY
     Dates: start: 20081201, end: 20120112
  2. RITONAVIR [Suspect]
     Indication: HIV INFECTION
     Dosage: 100 MG DAILY
     Dates: start: 20081201, end: 20120112

REACTIONS (1)
  - LIVER FUNCTION TEST ABNORMAL [None]
